FAERS Safety Report 5019446-6 (Version None)
Quarter: 2006Q2

REPORT INFORMATION
  Report Type: 
  Country: None (occurrence: None)
  Receive Date: 20060531
  Receipt Date: 20060522
  Transmission Date: 20061013
  Serious: Yes (Hospitalization)
  Sender: FDA-Public Use
  Company Number: 2006067318

PATIENT
  Sex: Female

DRUGS (4)
  1. AMLODIPINE [Suspect]
     Indication: HYPERTENSION
     Dosage: 5 MG (5 MG, DAILY) ORAL
     Route: 048
     Dates: start: 20060322, end: 20060324
  2. ELLESTE-SOLO (ESTRADIOL) [Concomitant]
  3. LANSOPRAZOLE [Concomitant]
  4. VITAMINS [Concomitant]

REACTIONS (10)
  - ARTHRALGIA [None]
  - CHEST DISCOMFORT [None]
  - COUGH [None]
  - DIZZINESS POSTURAL [None]
  - FLUSHING [None]
  - HYPERHIDROSIS [None]
  - NAUSEA [None]
  - PARAESTHESIA [None]
  - RHINORRHOEA [None]
  - VISION BLURRED [None]
